FAERS Safety Report 23570985 (Version 1)
Quarter: 2024Q1

REPORT INFORMATION
  Report Type: Spontaneous
  Country: US (occurrence: US)
  Receive Date: 20240227
  Receipt Date: 20240227
  Transmission Date: 20240410
  Serious: No
  Sender: FDA-Public Use
  Company Number: US-PFIZER INC-PV202400025916

PATIENT
  Age: 65 Year
  Sex: Female
  Weight: 72.7 kg

DRUGS (1)
  1. IBRANCE [Suspect]
     Active Substance: PALBOCICLIB
     Indication: Breast cancer female
     Dosage: 125 MG, CYCLIC (21 DAYS, FOLLOWED BY 7 DAYS OFF)
     Route: 048
     Dates: start: 20231003

REACTIONS (1)
  - Diarrhoea [Unknown]
